FAERS Safety Report 14249859 (Version 1)
Quarter: 2017Q4

REPORT INFORMATION
  Report Type: Spontaneous
  Country: US (occurrence: US)
  Receive Date: 20171204
  Receipt Date: 20171204
  Transmission Date: 20180321
  Serious: Yes (Other)
  Sender: FDA-Public Use
  Company Number: None

PATIENT
  Age: 46 Year
  Sex: Female
  Weight: 57.6 kg

DRUGS (3)
  1. NITROFURANTOIN MONO [Suspect]
     Active Substance: NITROFURANTOIN
     Indication: CYSTITIS
     Route: 048
     Dates: start: 20171124, end: 20171127
  2. IRON SUPPLEMENTS [Concomitant]
     Active Substance: IRON
  3. B-COMPLEX VITAMINS [Concomitant]

REACTIONS (9)
  - Nausea [None]
  - Peripheral coldness [None]
  - Palpitations [None]
  - Pain [None]
  - Headache [None]
  - Vision blurred [None]
  - Hypoacusis [None]
  - Adverse drug reaction [None]
  - Musculoskeletal disorder [None]

NARRATIVE: CASE EVENT DATE: 20171126
